FAERS Safety Report 7322171-X (Version None)
Quarter: 2011Q1

REPORT INFORMATION
  Report Type: 
  Country: None (occurrence: None)
  Receive Date: 20110228
  Receipt Date: 20110223
  Transmission Date: 20110831
  Serious: Yes (Death)
  Sender: FDA-Public Use
  Company Number: FR-MERCK-1102FRA00153

PATIENT
  Age: 71 Year
  Sex: Male

DRUGS (5)
  1. METHYLPREDNISOLONE [Suspect]
     Indication: PHARYNGEAL CANCER STAGE III
     Route: 042
     Dates: start: 20110125, end: 20110125
  2. EMEND [Suspect]
     Indication: PROPHYLAXIS OF NAUSEA AND VOMITING
     Route: 048
     Dates: start: 20110125, end: 20110125
  3. ONDANSETRON [Suspect]
     Route: 042
     Dates: start: 20110125, end: 20110125
  4. CISPLATIN [Suspect]
     Indication: PHARYNGEAL CANCER STAGE III
     Route: 042
     Dates: start: 20110125, end: 20110125
  5. SODIUM CHLORIDE [Suspect]
     Indication: FLUID REPLACEMENT
     Route: 042
     Dates: start: 20110125, end: 20110125

REACTIONS (1)
  - CARDIO-RESPIRATORY ARREST [None]
